APPROVED DRUG PRODUCT: VANCOMYCIN HYDROCHLORIDE
Active Ingredient: VANCOMYCIN HYDROCHLORIDE
Strength: EQ 250MG BASE
Dosage Form/Route: CAPSULE;ORAL
Application: A065478 | Product #002
Applicant: PAI HOLDINGS LLC DBA PHARMACEUTICAL ASSOCIATES INC AND DBA PAI PHARMA
Approved: Apr 9, 2012 | RLD: No | RS: No | Type: DISCN